FAERS Safety Report 13988627 (Version 3)
Quarter: 2017Q4

REPORT INFORMATION
  Report Type: Spontaneous
  Country: US (occurrence: US)
  Receive Date: 20170919
  Receipt Date: 20171107
  Transmission Date: 20180321
  Serious: No
  Sender: FDA-Public Use
  Company Number: US-009507513-1709USA008092

PATIENT
  Age: 20 Year
  Sex: Female

DRUGS (1)
  1. NEXPLANON [Suspect]
     Active Substance: ETONOGESTREL
     Indication: CONTRACEPTION
     Dosage: 1 IMPLANT EVERY 3 YEARS, IN THE LEFT ARM
     Route: 059
     Dates: start: 20170828

REACTIONS (2)
  - Adverse event [Unknown]
  - Device expulsion [Unknown]

NARRATIVE: CASE EVENT DATE: 2017
